FAERS Safety Report 6260875-0 (Version None)
Quarter: 2009Q3

REPORT INFORMATION
  Report Type: 
  Country: None (occurrence: None)
  Receive Date: 20090707
  Receipt Date: 20090701
  Transmission Date: 20100115
  Serious: Yes (Hospitalization)
  Sender: FDA-Public Use
  Company Number: GXKR2009DE07588

PATIENT
  Age: 17 Year
  Sex: Male

DRUGS (1)
  1. HALOPERIDOL HEXAL (NGX) (HALOPERIDOL) ORAL SOLUTION, 2MG/ML [Suspect]
     Dosage: INTRAVENOUS
     Route: 042
     Dates: start: 20090701

REACTIONS (1)
  - INCORRECT ROUTE OF DRUG ADMINISTRATION [None]
